FAERS Safety Report 11347119 (Version 1)
Quarter: 2015Q3

REPORT INFORMATION
  Report Type: Spontaneous
  Country: US (occurrence: US)
  Receive Date: 20150803
  Receipt Date: 20150803
  Transmission Date: 20151125
  Serious: Yes (Other)
  Sender: FDA-Public Use
  Company Number: US-ELI_LILLY_AND_COMPANY-US201104003165

PATIENT
  Sex: Female

DRUGS (3)
  1. LITHIUM. [Concomitant]
     Active Substance: LITHIUM
     Dosage: 300 MG, BID
  2. ZYPREXA [Suspect]
     Active Substance: OLANZAPINE
     Dosage: 10 MG, QD
     Dates: start: 20110401, end: 201104
  3. ZYPREXA [Suspect]
     Active Substance: OLANZAPINE
     Dosage: 15 MG, BID
     Dates: start: 201104

REACTIONS (2)
  - Prescribed overdose [Unknown]
  - Seizure [Unknown]

NARRATIVE: CASE EVENT DATE: 201104
